FAERS Safety Report 8844889 (Version 1)
Quarter: 2012Q4

REPORT INFORMATION
  Report Type: 
  Country: US (occurrence: US)
  Receive Date: 20121017
  Receipt Date: 20121017
  Transmission Date: 20130627
  Serious: No
  Sender: FDA-Public Use
  Company Number: US-VERTEX PHARMACEUTICAL INC.-2012-022547

PATIENT
  Sex: Female

DRUGS (4)
  1. VX-950 [Suspect]
     Indication: HEPATITIS C
     Dosage: UNK
     Route: 048
     Dates: start: 20120815
  2. RIBAPAK [Concomitant]
     Indication: HEPATITIS C
     Dosage: 1000 mg, UNK
     Dates: start: 20120815
  3. PEGASYS [Concomitant]
     Indication: HEPATITIS C
     Dosage: 180 ?g, UNK
     Dates: start: 20120815
  4. NORVASC [Concomitant]
     Dosage: 10 mg, UNK

REACTIONS (1)
  - Fatigue [Unknown]
